FAERS Safety Report 4337823-3 (Version None)
Quarter: 2004Q2

REPORT INFORMATION
  Report Type: 
  Country: None (occurrence: None)
  Receive Date: 20040406
  Receipt Date: 20030813
  Transmission Date: 20050107
  Serious: No
  Sender: FDA-Public Use
  Company Number: APP200301780 (0)

PATIENT

DRUGS (1)
  1. HEPARIN SODIUM INJECTION [Suspect]
     Indication: CARDIAC OPERATION
     Dosage: 20,000-30,000 USP UNITS (2 IN 1 D), INTRAVENOUS
     Route: 042
     Dates: start: 20030101, end: 20030101

REACTIONS (1)
  - DRUG INEFFECTIVE [None]
